FAERS Safety Report 25206805 (Version 1)
Quarter: 2025Q2

REPORT INFORMATION
  Report Type: Spontaneous
  Country: MK (occurrence: MK)
  Receive Date: 20250417
  Receipt Date: 20250417
  Transmission Date: 20250716
  Serious: Yes (Hospitalization, Other)
  Sender: TEVA
  Company Number: MK-TEVA-VS-3321796

PATIENT
  Age: 46 Year
  Sex: Male

DRUGS (1)
  1. CAPECITABINE [Suspect]
     Active Substance: CAPECITABINE
     Indication: Rectal cancer
     Route: 048

REACTIONS (4)
  - Cardiotoxicity [Recovered/Resolved]
  - Acute coronary syndrome [Recovered/Resolved]
  - Cardiogenic shock [Recovered/Resolved]
  - Cardiac failure acute [Recovered/Resolved]
